FAERS Safety Report 7972728-8 (Version None)
Quarter: 2011Q4

REPORT INFORMATION
  Report Type: 
  Country: None (occurrence: None)
  Receive Date: 20111213
  Receipt Date: 20111206
  Transmission Date: 20120403
  Serious: No
  Sender: FDA-Public Use
  Company Number: US-PFIZER INC-2011284325

PATIENT
  Sex: Female
  Weight: 72.562 kg

DRUGS (4)
  1. ZETIA [Concomitant]
     Indication: BLOOD CHOLESTEROL INCREASED
     Dosage: UNK
     Dates: start: 20111001
  2. TOPROL-XL [Concomitant]
     Indication: HYPERTENSION
     Dosage: UNK
  3. ATACAND [Concomitant]
     Indication: HYPERTENSION
     Dosage: UNK
  4. FLECTOR [Suspect]
     Indication: BURSITIS
     Dosage: UNK
     Dates: start: 20111118

REACTIONS (2)
  - DRUG ADMINISTRATION ERROR [None]
  - ARTHRALGIA [None]
